FAERS Safety Report 8207646-3 (Version None)
Quarter: 2012Q1

REPORT INFORMATION
  Report Type: 
  Country: None (occurrence: None)
  Receive Date: 20120314
  Receipt Date: 20120314
  Transmission Date: 20120608
  Serious: Yes (Other)
  Sender: FDA-Public Use
  Company Number: None

PATIENT
  Sex: Female
  Weight: 56.699 kg

DRUGS (1)
  1. ZYCLARA [Suspect]
     Indication: ACTINIC KERATOSIS
     Dosage: 28 SINGLE PACKETS, .25 G EACH
     Route: 061
     Dates: start: 20120308, end: 20120310

REACTIONS (4)
  - TREMOR [None]
  - INFLUENZA LIKE ILLNESS [None]
  - VOMITING [None]
  - CHILLS [None]
